FAERS Safety Report 6384687-2 (Version None)
Quarter: 2009Q4

REPORT INFORMATION
  Report Type: 
  Country: None (occurrence: None)
  Receive Date: 20091001
  Receipt Date: 20090922
  Transmission Date: 20100525
  Serious: Yes (Other)
  Sender: FDA-Public Use
  Company Number: US-ASTRAZENECA-2009SE14495

PATIENT
  Age: 53 Year
  Weight: 86.6 kg

DRUGS (4)
  1. TOPROL-XL [Suspect]
     Route: 048
     Dates: start: 20090727
  2. SUNITINIB MALATE [Suspect]
     Indication: NON-SMALL CELL LUNG CANCER
     Route: 048
     Dates: start: 20090626
  3. LOSARTAN POTASSIUM AND HYDROCHLOROTHIAZIDE [Suspect]
     Dosage: 100/25 DAILY
     Route: 065
     Dates: start: 19950101
  4. CHEMOTHERAPY [Concomitant]
     Dates: start: 20081101, end: 20090301

REACTIONS (2)
  - HYPOKALAEMIA [None]
  - LEFT VENTRICULAR DYSFUNCTION [None]
